FAERS Safety Report 18451856 (Version 3)
Quarter: 2021Q1

REPORT INFORMATION
  Report Type: Spontaneous
  Country: JP (occurrence: JP)
  Receive Date: 20201102
  Receipt Date: 20210223
  Transmission Date: 20210419
  Serious: Yes (Death, Life-Threatening, Hospitalization, Disabling, Other)
  Sender: FDA-Public Use
  Company Number: JP-009507513-2010JPN000748J

PATIENT
  Age: 66 Year
  Sex: Male
  Weight: 50 kg

DRUGS (3)
  1. MAGMITT [Concomitant]
     Active Substance: MAGNESIUM OXIDE
     Dosage: UNK
     Route: 065
  2. KEYTRUDA [Suspect]
     Active Substance: PEMBROLIZUMAB
     Indication: URETERIC CANCER
     Dosage: 200 MILLIGRAM, ONCE
     Route: 041
     Dates: start: 20200924, end: 20200924
  3. NAIXAN [Concomitant]
     Active Substance: NAPROXEN SODIUM
     Indication: TUMOUR ASSOCIATED FEVER
     Dosage: 3 DOSAGE FORM, TID
     Route: 048
     Dates: start: 20200905, end: 20201008

REACTIONS (2)
  - Renal impairment [Recovered/Resolved with Sequelae]
  - Malignant neoplasm progression [Fatal]

NARRATIVE: CASE EVENT DATE: 20200926
